FAERS Safety Report 6203841-3 (Version None)
Quarter: 2009Q2

REPORT INFORMATION
  Report Type: 
  Country: None (occurrence: None)
  Receive Date: 20090527
  Receipt Date: 20090515
  Transmission Date: 20091009
  Serious: Yes (Disabling)
  Sender: FDA-Public Use
  Company Number: PL-PFIZER INC-2009216481

PATIENT
  Age: 34 Year

DRUGS (1)
  1. ZELDOX [Suspect]
     Route: 048
     Dates: start: 20090115, end: 20090510

REACTIONS (2)
  - ERECTILE DYSFUNCTION [None]
  - LIBIDO DECREASED [None]
